FAERS Safety Report 4367355-8 (Version None)
Quarter: 2004Q2

REPORT INFORMATION
  Report Type: 
  Country: None (occurrence: None)
  Receive Date: 20040527
  Receipt Date: 20040512
  Transmission Date: 20050107
  Serious: Yes (Hospitalization)
  Sender: FDA-Public Use
  Company Number: 2004-01907

PATIENT
  Age: 83 Year
  Sex: Male

DRUGS (1)
  1. IMMUCYST (BCG - IT (CONNAUGHT) [Suspect]
     Indication: BLADDER CANCER
     Dosage: 81 MG (81.0 MG) B.IN. BLADDER
     Route: 043
     Dates: start: 20040315, end: 20040423

REACTIONS (1)
  - BOVINE TUBERCULOSIS [None]
